FAERS Safety Report 7480026-4 (Version None)
Quarter: 2011Q2

REPORT INFORMATION
  Report Type: 
  Country: None (occurrence: None)
  Receive Date: 20110516
  Receipt Date: 20110504
  Transmission Date: 20111010
  Serious: No
  Sender: FDA-Public Use
  Company Number: US-BIOGENIDEC-2010BI028443

PATIENT
  Sex: Female

DRUGS (1)
  1. TYSABRI [Suspect]
     Indication: MULTIPLE SCLEROSIS
     Route: 042
     Dates: start: 20100111

REACTIONS (4)
  - INFUSION RELATED REACTION [None]
  - INFUSION SITE HAEMORRHAGE [None]
  - INFUSION SITE PAIN [None]
  - POOR VENOUS ACCESS [None]
